FAERS Safety Report 8542682-9 (Version None)
Quarter: 2012Q3

REPORT INFORMATION
  Report Type: 
  Country: None (occurrence: None)
  Receive Date: 20120727
  Receipt Date: 20120716
  Transmission Date: 20120928
  Serious: Yes (Other)
  Sender: FDA-Public Use
  Company Number: HR-009507513-1206USA03648

PATIENT

DRUGS (1)
  1. FOSAMAX [Suspect]
     Indication: OSTEOPOROSIS
     Dosage: 70 MG, QW
     Route: 048
     Dates: start: 20070101

REACTIONS (5)
  - STOMATITIS [None]
  - DYSPHAGIA [None]
  - LEUKOPLAKIA ORAL [None]
  - HEADACHE [None]
  - GLOSSODYNIA [None]
